FAERS Safety Report 23644690 (Version 1)
Quarter: 2024Q1

REPORT INFORMATION
  Report Type: Spontaneous
  Country: US (occurrence: None)
  Receive Date: 20240317
  Receipt Date: 20240317
  Transmission Date: 20240410
  Serious: No
  Sender: FDA-Public Use
  Company Number: None

PATIENT
  Age: 41 Year
  Sex: Female
  Weight: 67.5 kg

DRUGS (1)
  1. BUPROPION [Suspect]
     Active Substance: BUPROPION
     Indication: Depression
     Dosage: OTHER QUANTITY : 1 TABLET(S);?
     Route: 048
     Dates: start: 20140101, end: 20220101

REACTIONS (4)
  - Alopecia [None]
  - Rash [None]
  - Pruritus [None]
  - Therapy cessation [None]

NARRATIVE: CASE EVENT DATE: 20240101
